FAERS Safety Report 7396512-1 (Version None)
Quarter: 2011Q2

REPORT INFORMATION
  Report Type: 
  Country: None (occurrence: None)
  Receive Date: 20110406
  Receipt Date: 20110401
  Transmission Date: 20111010
  Serious: Yes (Death, Hospitalization)
  Sender: FDA-Public Use
  Company Number: US-SANOFI-AVENTIS-2011SA019898

PATIENT
  Age: 21 Year
  Sex: Female

DRUGS (4)
  1. FLUOROURACIL [Suspect]
     Indication: COLON CANCER
  2. AVASTIN [Suspect]
     Indication: COLON CANCER
  3. OXALIPLATIN [Suspect]
     Indication: COLON CANCER
  4. LEUCOVORIN [Suspect]
     Indication: COLON CANCER

REACTIONS (3)
  - MYOCARDIAL INFARCTION [None]
  - DEATH [None]
  - CONVULSION [None]
